FAERS Safety Report 10573589 (Version 3)
Quarter: 2015Q2

REPORT INFORMATION
  Report Type: Report from Study
  Country: US (occurrence: US)
  Receive Date: 20141110
  Receipt Date: 20150514
  Transmission Date: 20150821
  Serious: Yes (Other)
  Sender: FDA-Public Use
  Company Number: US-SA-2014SA151458

PATIENT
  Age: 67 Year
  Sex: Female

DRUGS (1)
  1. AUBAGIO [Suspect]
     Active Substance: TERIFLUNOMIDE
     Indication: MULTIPLE SCLEROSIS
     Route: 048
     Dates: start: 20140701

REACTIONS (7)
  - Alopecia [Unknown]
  - Insomnia [Unknown]
  - Central nervous system lesion [Unknown]
  - Fall [Unknown]
  - Rib fracture [Unknown]
  - Skeletal injury [Unknown]
  - Pain [Unknown]

NARRATIVE: CASE EVENT DATE: 201411
